FAERS Safety Report 6431657-1 (Version None)
Quarter: 2009Q4

REPORT INFORMATION
  Report Type: 
  Country: None (occurrence: None)
  Receive Date: 20091103
  Receipt Date: 20091021
  Transmission Date: 20100525
  Serious: Yes (Hospitalization, Other)
  Sender: FDA-Public Use
  Company Number: WAES 0910USA02623

PATIENT
  Age: 48 Year
  Sex: Male

DRUGS (4)
  1. ISENTRESS [Suspect]
     Indication: HIV INFECTION
     Dosage: 600 MG/BID PO
     Route: 048
  2. PLACEBO (UNSPECIFIED) [Suspect]
     Indication: HIV INFECTION
     Dosage: PO
     Route: 048
  3. TENOFOVIR DISOPROXIL FUMARATE [Suspect]
     Indication: HIV INFECTION
     Dosage: 300 MG/DAILY
  4. LAMIVUDINE [Suspect]
     Indication: HIV INFECTION
     Dosage: 300 MG/DAILY

REACTIONS (5)
  - GROWTH HORMONE DEFICIENCY [None]
  - HAEMOGLOBIN DECREASED [None]
  - HEPATITIS C [None]
  - OSTEOARTHRITIS [None]
  - OSTEONECROSIS [None]
